FAERS Safety Report 26000324 (Version 1)
Quarter: 2025Q4

REPORT INFORMATION
  Report Type: Other
  Country: CA (occurrence: CA)
  Receive Date: 20251105
  Receipt Date: 20251105
  Transmission Date: 20260118
  Serious: Yes (Hospitalization)
  Sender: APOTEX
  Company Number: CA-PGRTD-001152183

PATIENT
  Age: 3 Year
  Sex: Female
  Weight: 13.6 kg

DRUGS (1)
  1. ACETAMINOPHEN [Suspect]
     Active Substance: ACETAMINOPHEN
     Indication: Headache
     Dosage: 1 EVERY 4 HOURS
     Route: 048

REACTIONS (2)
  - Medication overuse headache [Recovered/Resolved]
  - Vomiting [Recovered/Resolved]
